FAERS Safety Report 12594753 (Version 1)
Quarter: 2016Q3

REPORT INFORMATION
  Report Type: Spontaneous
  Country: US (occurrence: US)
  Receive Date: 20160726
  Receipt Date: 20160726
  Transmission Date: 20161109
  Serious: No
  Sender: FDA-Public Use
  Company Number: US-GE HEALTHCARE MEDICAL DIAGNOSTICS-VISP-PR-1509S-0376

PATIENT
  Age: 68 Year
  Sex: Female
  Weight: 48.12 kg

DRUGS (4)
  1. VISIPAQUE [Suspect]
     Active Substance: IODIXANOL
     Indication: MASS
  2. VISIPAQUE [Suspect]
     Active Substance: IODIXANOL
     Indication: ABDOMINAL DISTENSION
     Route: 042
     Dates: start: 20150902, end: 20150902
  3. VISIPAQUE [Suspect]
     Active Substance: IODIXANOL
     Indication: METASTATIC CARCINOID TUMOUR
  4. VISIPAQUE [Suspect]
     Active Substance: IODIXANOL
     Indication: DIAGNOSTIC PROCEDURE

REACTIONS (3)
  - Erythema [Recovered/Resolved]
  - Rash [Recovered/Resolved]
  - Pruritus [Recovered/Resolved]

NARRATIVE: CASE EVENT DATE: 20150902
